FAERS Safety Report 8212139-3 (Version None)
Quarter: 2012Q1

REPORT INFORMATION
  Report Type: 
  Country: None (occurrence: None)
  Receive Date: 20120315
  Receipt Date: 20120313
  Transmission Date: 20120608
  Serious: Yes (Life-Threatening, Hospitalization)
  Sender: FDA-Public Use
  Company Number: PHHY2012CA018762

PATIENT
  Sex: Male

DRUGS (2)
  1. AFINITOR [Suspect]
     Indication: SMALL INTESTINE CARCINOMA
     Dosage: 05 MG, DAILY
     Route: 048
     Dates: start: 20110804
  2. SANDOSTATIN LAR [Suspect]
     Indication: SMALL INTESTINE CARCINOMA
     Dosage: 40 MG, EVERY 3 WEEKS
     Route: 030
     Dates: start: 20090302

REACTIONS (5)
  - RENAL FAILURE [None]
  - HYDRONEPHROSIS [None]
  - NEOPLASM PROGRESSION [None]
  - BLOOD POTASSIUM INCREASED [None]
  - NEOPLASM MALIGNANT [None]
